FAERS Safety Report 9682616 (Version 3)
Quarter: 2013Q4

REPORT INFORMATION
  Report Type: Report from Study
  Country: KR (occurrence: KR)
  Receive Date: 20131112
  Receipt Date: 20131206
  Transmission Date: 20140711
  Serious: Yes (Other)
  Sender: FDA-Public Use
  Company Number: KR-ROCHE-1302753

PATIENT
  Age: 73 Year
  Sex: Female

DRUGS (3)
  1. RANIBIZUMAB [Suspect]
     Indication: AGE-RELATED MACULAR DEGENERATION
     Dosage: 0.5 MG/ 0.05ML
     Route: 050
  2. RANIBIZUMAB [Suspect]
     Route: 050
  3. POVIDONE [Concomitant]
     Route: 065

REACTIONS (2)
  - Visual acuity reduced [Unknown]
  - Retinal pigment epithelial tear [Unknown]
